FAERS Safety Report 20877952 (Version 1)
Quarter: 2022Q2

REPORT INFORMATION
  Report Type: Spontaneous
  Country: GB (occurrence: GB)
  Receive Date: 20220526
  Receipt Date: 20220526
  Transmission Date: 20220721
  Serious: Yes (Other)
  Sender: FDA-Public Use
  Company Number: None

PATIENT
  Age: 54 Year
  Sex: Male

DRUGS (1)
  1. OCRELIZUMAB [Suspect]
     Active Substance: OCRELIZUMAB
     Indication: Multiple sclerosis
     Dosage: 600 MG
     Route: 042
     Dates: start: 20200818, end: 20210816

REACTIONS (1)
  - Sinus tachycardia [Recovered/Resolved with Sequelae]

NARRATIVE: CASE EVENT DATE: 20210816
